FAERS Safety Report 5986570-0 (Version None)
Quarter: 2008Q4

REPORT INFORMATION
  Report Type: 
  Country: None (occurrence: None)
  Receive Date: 20081209
  Receipt Date: 20081205
  Transmission Date: 20090506
  Serious: Yes (Other)
  Sender: FDA-Public Use
  Company Number: DE-WYE-G02511208

PATIENT
  Sex: Female
  Weight: 61 kg

DRUGS (3)
  1. TREVILOR RETARD [Suspect]
     Indication: DEPRESSION
     Route: 048
     Dates: start: 20070213, end: 20080218
  2. ZINC [Concomitant]
     Indication: PROPHYLAXIS
     Route: 048
     Dates: start: 20080401
  3. FOLIC ACID [Concomitant]
     Indication: CONGENITAL ABNORMALITY PROPHYLAXIS
     Route: 048
     Dates: start: 20080401

REACTIONS (6)
  - BLOOD IRON DECREASED [None]
  - DRUG EXPOSURE DURING PREGNANCY [None]
  - MUSCLE SPASMS [None]
  - PREGNANCY [None]
  - PREMATURE BABY [None]
  - TACHYCARDIA [None]
